FAERS Safety Report 10370912 (Version 1)
Quarter: 2014Q1

REPORT INFORMATION
  Report Type: Spontaneous
  Country: US (occurrence: None)
  Receive Date: 20140306
  Receipt Date: 20140306
  Transmission Date: 20141002
  Serious: Yes (Hospitalization)
  Sender: FDA-Public Use
  Company Number: 163-21880-13080733

PATIENT
  Age: 58 Year
  Sex: Female

DRUGS (1)
  1. REVLIMID (LENALIDOMIDE) (CAPSULES) [Suspect]
     Indication: PLASMA CELL MYELOMA
     Dosage: FEB-2013 - DISCONTINUED
     Route: 048
     Dates: start: 201302

REACTIONS (4)
  - Abasia [None]
  - Loss of consciousness [None]
  - Hypertension [None]
  - Neuropathy peripheral [None]
